FAERS Safety Report 6847792-X (Version None)
Quarter: 2010Q3

REPORT INFORMATION
  Report Type: 
  Country: None (occurrence: None)
  Receive Date: 20100716
  Receipt Date: 20100708
  Transmission Date: 20110219
  Serious: Yes (Other)
  Sender: FDA-Public Use
  Company Number: JP-SHIRE-SPV1-2010-01103

PATIENT

DRUGS (13)
  1. FOSRENOL [Suspect]
     Indication: HYPERPHOSPHATAEMIA
     Route: 048
     Dates: start: 20090910
  2. FOSRENOL [Suspect]
     Indication: HYPOCALCAEMIA
     Route: 048
     Dates: start: 20090928, end: 20091207
  3. MARZULENE                          /00317302/ [Concomitant]
     Dosage: 2G DAILY
     Route: 048
  4. ACECOL [Concomitant]
     Dosage: 4MG DAILY
     Route: 048
  5. NORVASC [Concomitant]
     Dosage: 5MG DAILY
     Route: 048
  6. CALBLOCK [Concomitant]
     Dosage: 8MG DAILY
     Route: 048
  7. ZOPICOOL [Concomitant]
     Dosage: 7.5MG DAILY
     Route: 048
  8. FAMOTIDINE [Concomitant]
     Dosage: 10MG DAILY
     Route: 048
  9. DOXAZOSIN MESYLATE [Concomitant]
     Dosage: 2MG DAILY
     Route: 048
  10. ROCALTROL [Concomitant]
     Dosage: 0.5UG DAILY
     Route: 042
     Dates: end: 20090914
  11. CALCIUM CARBONATE [Concomitant]
     Indication: HYPERPHOSPHATAEMIA
     Dosage: 3G DAILY
     Route: 048
     Dates: end: 20090819
  12. CALCIUM CARBONATE [Concomitant]
     Dosage: 3G DAILY
     Route: 048
     Dates: start: 20091207
  13. CALCIUM CARBONATE [Concomitant]
     Indication: HYPERPHOSPHATAEMIA
     Route: 048
     Dates: start: 20091207

REACTIONS (1)
  - HYPOCALCAEMIA [None]
